FAERS Safety Report 8926749 (Version 3)
Quarter: 2013Q1

REPORT INFORMATION
  Report Type: Spontaneous
  Country: US (occurrence: US)
  Receive Date: 20121127
  Receipt Date: 20130306
  Transmission Date: 20140127
  Serious: No
  Sender: FDA-Public Use
  Company Number: US-PFIZER INC-2012292481

PATIENT
  Age: 9 Decade
  Sex: 0

DRUGS (5)
  1. TOVIAZ [Suspect]
     Indication: HYPERTONIC BLADDER
     Dosage: 4MG-8MG, DAILY
     Route: 048
     Dates: start: 20120430, end: 20120601
  2. LISINOPRIL [Concomitant]
     Dosage: 40 DAILY
     Route: 048
  3. HYDROCORTISONE [Concomitant]
     Dosage: 10 MG, 2X/DAY
     Route: 048
  4. LEVOTHYROXINE [Concomitant]
     Dosage: 125 UG, DAILY
  5. METOPROLOL ER [Concomitant]
     Dosage: 50 MG, DAILY
     Route: 048

REACTIONS (4)
  - Drug hypersensitivity [Recovered/Resolved]
  - Pruritus [Recovered/Resolved]
  - Rash [Recovered/Resolved]
  - Discomfort [Recovered/Resolved]
